FAERS Safety Report 20787810 (Version 1)
Quarter: 2022Q2

REPORT INFORMATION
  Report Type: Spontaneous
  Country: US (occurrence: US)
  Receive Date: 20220505
  Receipt Date: 20220505
  Transmission Date: 20220721
  Serious: Yes (Hospitalization, Other)
  Sender: FDA-Public Use
  Company Number: US-SUN PHARMACEUTICAL INDUSTRIES LTD-2022R1-334218

PATIENT
  Age: 21 Year
  Sex: Female

DRUGS (2)
  1. PREDNISONE [Suspect]
     Active Substance: PREDNISONE
     Indication: Interstitial lung disease
     Dosage: 10 MILLIGRAM, DAILY
     Route: 065
  2. RITUXIMAB [Suspect]
     Active Substance: RITUXIMAB
     Indication: Interstitial lung disease
     Dosage: 2000 MG EVERY 5 MONTHS
     Route: 042

REACTIONS (4)
  - Oligohydramnios [Unknown]
  - Foetal hypokinesia [Unknown]
  - Exposure during pregnancy [Unknown]
  - Premature delivery [Unknown]
